FAERS Safety Report 5369675-7 (Version None)
Quarter: 2007Q2

REPORT INFORMATION
  Report Type: 
  Country: None (occurrence: None)
  Receive Date: 20070625
  Receipt Date: 20070613
  Transmission Date: 20071010
  Serious: Yes (Hospitalization)
  Sender: FDA-Public Use
  Company Number: GB-PFIZER INC-2007048853

PATIENT
  Sex: Male
  Weight: 86.9 kg

DRUGS (9)
  1. SU-011,248 [Suspect]
     Indication: RENAL CELL CARCINOMA STAGE UNSPECIFIED
     Route: 048
  2. MORPHINE SULFATE [Concomitant]
     Route: 048
  3. GABAPENTIN [Concomitant]
     Route: 048
  4. LANSOPRAZOLE [Concomitant]
     Route: 048
  5. METOCLOPRAMIDE HYDROCHLORIDE [Concomitant]
     Route: 048
  6. CELECOXIB [Concomitant]
     Route: 048
  7. ENALAPRIL [Concomitant]
     Route: 048
  8. ACETAMINOPHEN [Concomitant]
     Route: 048
  9. TEMAZEPAM [Concomitant]
     Route: 048

REACTIONS (1)
  - CONFUSIONAL STATE [None]
